FAERS Safety Report 12390167 (Version 1)
Quarter: 2016Q2

REPORT INFORMATION
  Report Type: Spontaneous
  Country: US (occurrence: US)
  Receive Date: 20160520
  Receipt Date: 20160520
  Transmission Date: 20160815
  Serious: Yes (Other)
  Sender: FDA-Public Use
  Company Number: US-MDT-ADR-2016-00494

PATIENT
  Age: 53 Year
  Sex: Female

DRUGS (5)
  1. CLONIDINE. [Suspect]
     Active Substance: CLONIDINE
     Dosage: 49 MCG/DAY
     Route: 037
  2. BACLOFEN. [Suspect]
     Active Substance: BACLOFEN
     Dosage: 245.21 MCG/DAY
     Route: 037
  3. DILAUDID [Suspect]
     Active Substance: HYDROMORPHONE HYDROCHLORIDE
     Dosage: 4 MG EVERY 4 HOURS
     Route: 048
  4. FENTANYL. [Suspect]
     Active Substance: FENTANYL
     Dosage: 245.21 MCG/DAY
     Route: 037
  5. DILAUDID [Suspect]
     Active Substance: HYDROMORPHONE HYDROCHLORIDE
     Dosage: 9.808 MG/DAY
     Route: 037

REACTIONS (5)
  - Malaise [Unknown]
  - Adverse drug reaction [Unknown]
  - Pain [Unknown]
  - Drug withdrawal syndrome [Unknown]
  - Vomiting [Unknown]
